FAERS Safety Report 7312962-3 (Version None)
Quarter: 2011Q1

REPORT INFORMATION
  Report Type: 
  Country: None (occurrence: None)
  Receive Date: 20110224
  Receipt Date: 20110214
  Transmission Date: 20110831
  Serious: Yes (Hospitalization, Other)
  Sender: FDA-Public Use
  Company Number: US-ELI_LILLY_AND_COMPANY-US201102004095

PATIENT
  Sex: Male
  Weight: 135.15 kg

DRUGS (4)
  1. HUMALOG [Suspect]
     Indication: TYPE 2 DIABETES MELLITUS
     Dosage: UNK, AS NEEDED
  2. NOVOLOG [Concomitant]
     Indication: TYPE 2 DIABETES MELLITUS
  3. HUMALOG [Suspect]
     Dosage: UNK, AS NEEDED
  4. LANTUS [Concomitant]

REACTIONS (5)
  - EPISTAXIS [None]
  - INCORRECT DOSE ADMINISTERED [None]
  - DRUG EFFECT DELAYED [None]
  - HAEMORRHAGE [None]
  - INJECTION SITE SWELLING [None]
